FAERS Safety Report 5148943-8 (Version None)
Quarter: 2006Q4

REPORT INFORMATION
  Report Type: 
  Country: None (occurrence: None)
  Receive Date: 20061113
  Receipt Date: 20061031
  Transmission Date: 20070319
  Serious: Yes (Other)
  Sender: FDA-Public Use
  Company Number: PHNU2006DE03597

PATIENT
  Sex: Male

DRUGS (1)
  1. VOLTAREN [Suspect]
     Dosage: UNK, PRN
     Route: 048
     Dates: start: 19900101

REACTIONS (2)
  - ALCOHOL POISONING [None]
  - HEPATIC CIRRHOSIS [None]
